FAERS Safety Report 5753686-3 (Version None)
Quarter: 2008Q2

REPORT INFORMATION
  Report Type: 
  Country: None (occurrence: None)
  Receive Date: 20080530
  Receipt Date: 20080522
  Transmission Date: 20081010
  Serious: Yes (Life-Threatening, Hospitalization, Other)
  Sender: FDA-Public Use
  Company Number: JP-WYE-H04233608

PATIENT
  Sex: Male
  Weight: 70 kg

DRUGS (10)
  1. AMIODARONE HCL [Suspect]
     Indication: VENTRICULAR TACHYCARDIA
     Route: 042
     Dates: start: 20080402, end: 20080402
  2. AMIODARONE HCL [Suspect]
     Route: 042
     Dates: start: 20080402, end: 20080403
  3. AMIODARONE HCL [Suspect]
     Route: 042
     Dates: start: 20080405, end: 20080405
  4. AMIODARONE HCL [Suspect]
     Route: 042
     Dates: start: 20080405, end: 20080406
  5. INOVAN [Concomitant]
     Dosage: ^88^
     Route: 042
     Dates: start: 20080402
  6. CEFAMEZIN ^FUJISAWA^ [Concomitant]
     Route: 042
     Dates: start: 20080403, end: 20080410
  7. MIDAZOLAM HCL [Concomitant]
     Dosage: 240 MG
     Route: 042
     Dates: start: 20080402, end: 20080430
  8. DOBUTREX [Concomitant]
     Dosage: 48
     Route: 030
     Dates: start: 20080403
  9. LIDOCAINE [Concomitant]
     Indication: ARRHYTHMIA
     Route: 042
     Dates: start: 20080402, end: 20080402
  10. HEPARIN [Concomitant]
     Dosage: 15000 UNITS
     Route: 042
     Dates: start: 20080402

REACTIONS (8)
  - ATRIOVENTRICULAR BLOCK COMPLETE [None]
  - BLOOD BILIRUBIN INCREASED [None]
  - BLOOD CREATINE PHOSPHOKINASE INCREASED [None]
  - BLOOD POTASSIUM INCREASED [None]
  - BLOOD UREA INCREASED [None]
  - C-REACTIVE PROTEIN INCREASED [None]
  - HEPATIC ENZYME INCREASED [None]
  - WHITE BLOOD CELL COUNT INCREASED [None]
